FAERS Safety Report 16040782 (Version 1)
Quarter: 2019Q2

REPORT INFORMATION
  Report Type: Spontaneous
  Country: US (occurrence: US)
  Receive Date: 20190305
  Receipt Date: 20190305
  Transmission Date: 20190711
  Serious: No
  Sender: FDA-Public Use
  Company Number: None

PATIENT
  Age: 6 Month
  Sex: Male
  Weight: 5.6 kg

DRUGS (1)
  1. EPANED [Suspect]
     Active Substance: ENALAPRIL MALEATE
     Indication: HYPERTENSION
     Dosage: ?          OTHER ROUTE:GASTROSTOMY?
     Dates: start: 20181101

REACTIONS (3)
  - Skin discolouration [None]
  - Skin burning sensation [None]
  - Erythema [None]

NARRATIVE: CASE EVENT DATE: 20190226
